FAERS Safety Report 12923931 (Version 7)
Quarter: 2017Q1

REPORT INFORMATION
  Report Type: Other
  Country: AT (occurrence: AT)
  Receive Date: 20161109
  Receipt Date: 20170302
  Transmission Date: 20170428
  Serious: Yes (Hospitalization, Other)
  Sender: FDA-Public Use
  Company Number: AT-SHIRE-AT201616356

PATIENT
  Age: 51 Year
  Sex: Female
  Weight: 43.5 kg

DRUGS (5)
  1. REVESTIVE [Suspect]
     Active Substance: TEDUGLUTIDE
     Indication: SHORT-BOWEL SYNDROME
     Dosage: 0.05 MG/KG, 1X/DAY:QD
     Route: 058
     Dates: start: 20161020
  2. NOVALGIN [Concomitant]
     Active Substance: METAMIZOLE SODIUM
     Indication: PAIN
     Dosage: UNK, AS REQ^D (DROPS-GTT)
     Route: 065
  3. IVADAL [Concomitant]
     Active Substance: ZOLPIDEM TARTRATE
     Indication: SLEEP DISORDER
     Dosage: UNK, AS REQ^D
     Route: 065
  4. REVESTIVE [Suspect]
     Active Substance: TEDUGLUTIDE
     Dosage: 0.05 MG/KG, EVERY 48 HOURS FOR ONE WEEK
     Route: 058
     Dates: start: 20161223
  5. REVESTIVE [Suspect]
     Active Substance: TEDUGLUTIDE
     Dosage: 0.025 MG/KG, OTHER (EVERY 48 HOURS)
     Route: 058
     Dates: start: 20170217

REACTIONS (10)
  - Stress [Unknown]
  - Vomiting [Not Recovered/Not Resolved]
  - Flatulence [Not Recovered/Not Resolved]
  - Device related sepsis [Unknown]
  - Nausea [Not Recovered/Not Resolved]
  - Headache [Not Recovered/Not Resolved]
  - Prescribed underdose [Not Recovered/Not Resolved]
  - Inappropriate schedule of drug administration [Not Recovered/Not Resolved]
  - Pneumothorax [Recovered/Resolved]
  - Malaise [Unknown]

NARRATIVE: CASE EVENT DATE: 20161024
